FAERS Safety Report 4606923-2 (Version None)
Quarter: 2005Q1

REPORT INFORMATION
  Report Type: 
  Country: None (occurrence: None)
  Receive Date: 20050309
  Receipt Date: 20050221
  Transmission Date: 20050727
  Serious: Yes (Hospitalization)
  Sender: FDA-Public Use
  Company Number: B0373143A

PATIENT
  Age: 3 Month
  Sex: Female

DRUGS (3)
  1. LANOXIN [Suspect]
     Dosage: 25 MCG/ TWICE PER DAY
  2. CAPTOPRIL [Concomitant]
  3. FRUSEMIDE [Concomitant]

REACTIONS (18)
  - APNOEA [None]
  - BLOOD CREATININE DECREASED [None]
  - BLOOD GLUCOSE INCREASED [None]
  - CARDIAC ARREST [None]
  - COMA [None]
  - CYANOSIS [None]
  - EXTRASYSTOLES [None]
  - HAEMATOCRIT DECREASED [None]
  - HYPOTENSION [None]
  - HYPOTONIA [None]
  - MEDICATION ERROR [None]
  - NODAL ARRHYTHMIA [None]
  - PULSE ABSENT [None]
  - SINUS BRADYCARDIA [None]
  - THERAPEUTIC AGENT TOXICITY [None]
  - VENTRICULAR EXTRASYSTOLES [None]
  - VENTRICULAR TACHYCARDIA [None]
  - VOMITING [None]
